FAERS Safety Report 8291428-0 (Version None)
Quarter: 2012Q2

REPORT INFORMATION
  Report Type: 
  Country: None (occurrence: None)
  Receive Date: 20120412
  Receipt Date: 20120403
  Transmission Date: 20120825
  Serious: Yes (Hospitalization)
  Sender: FDA-Public Use
  Company Number: 2012SP018351

PATIENT
  Age: 24 Year
  Sex: Female

DRUGS (1)
  1. IMPLANON [Suspect]
     Indication: CONTRACEPTION
     Dosage: 1 DF
     Dates: start: 20100601, end: 20120306

REACTIONS (12)
  - HYPERTENSION [None]
  - HEADACHE [None]
  - ANXIETY [None]
  - NEUROTRANSMITTER LEVEL ALTERED [None]
  - ASTHENIA [None]
  - DYSMENORRHOEA [None]
  - THYROID DISORDER [None]
  - WEIGHT DECREASED [None]
  - DIARRHOEA [None]
  - PANIC ATTACK [None]
  - INSOMNIA [None]
  - ABDOMINAL PAIN UPPER [None]
